FAERS Safety Report 10494070 (Version 5)
Quarter: 2014Q4

REPORT INFORMATION
  Report Type: Spontaneous
  Country: FI (occurrence: FI)
  Receive Date: 20141003
  Receipt Date: 20141119
  Transmission Date: 20150528
  Serious: Yes (Other)
  Sender: FDA-Public Use
  Company Number: FI-ROCHE-1469095

PATIENT
  Age: 61 Year
  Sex: Female

DRUGS (2)
  1. ROFERON-A [Suspect]
     Active Substance: INTERFERON ALFA-2A
     Indication: ESSENTIAL THROMBOCYTHAEMIA
     Dosage: 3 MIO PFS 5X0.5 ML
     Route: 058
     Dates: start: 20140314
  2. ROFERON-A [Suspect]
     Active Substance: INTERFERON ALFA-2A
     Route: 058
     Dates: start: 20140506

REACTIONS (2)
  - Platelet count increased [Recovered/Resolved]
  - Drug ineffective [Unknown]

NARRATIVE: CASE EVENT DATE: 20140926
